FAERS Safety Report 20092314 (Version 1)
Quarter: 2021Q4

REPORT INFORMATION
  Report Type: Other
  Country: AU (occurrence: AU)
  Receive Date: 20211119
  Receipt Date: 20211119
  Transmission Date: 20220304
  Serious: Yes (Other)
  Sender: FDA-Public Use
  Company Number: AU-GE HEALTHCARE-2021CSU005819

PATIENT

DRUGS (2)
  1. OMNIPAQUE [Suspect]
     Active Substance: IOHEXOL
     Indication: Diagnostic procedure
     Dosage: UNK UNK, SINGLE
     Route: 065
  2. OMNIPAQUE [Suspect]
     Active Substance: IOHEXOL
     Indication: Product used for unknown indication

REACTIONS (7)
  - Malaise [Unknown]
  - Tremor [Unknown]
  - Dyspnoea [Unknown]
  - Peripheral coldness [Unknown]
  - Erythema [Unknown]
  - Urticaria [Unknown]
  - Rash [Unknown]
